FAERS Safety Report 22047681 (Version 2)
Quarter: 2023Q1

REPORT INFORMATION
  Report Type: Report from Study
  Country: BR (occurrence: BR)
  Receive Date: 20230301
  Receipt Date: 20230323
  Transmission Date: 20230417
  Serious: Yes (Other)
  Sender: FDA-Public Use
  Company Number: BR-JNJFOC-20230255724

PATIENT
  Age: 14 Year
  Sex: Female
  Weight: 60 kg

DRUGS (1)
  1. REMICADE [Suspect]
     Active Substance: INFLIXIMAB
     Indication: Crohn^s disease
     Dosage: 3 EVERY 6 WEEKS
     Route: 041
     Dates: start: 20180705

REACTIONS (3)
  - Crohn^s disease [Unknown]
  - Therapeutic product effect decreased [Unknown]
  - Off label use [Unknown]
